FAERS Safety Report 7819084-3 (Version None)
Quarter: 2011Q4

REPORT INFORMATION
  Report Type: 
  Country: None (occurrence: None)
  Receive Date: 20111018
  Receipt Date: 20111010
  Transmission Date: 20120403
  Serious: Yes (Hospitalization)
  Sender: FDA-Public Use
  Company Number: US-ASTELLAS-2011US006737

PATIENT

DRUGS (2)
  1. PROGRAF [Suspect]
     Indication: RENAL TRANSPLANT
     Dosage: 3 MG, BID
     Route: 048
     Dates: start: 20051207
  2. MYFORTIC [Concomitant]
     Indication: RENAL TRANSPLANT
     Dosage: 350 MG, BID
     Route: 048

REACTIONS (1)
  - RENAL DISORDER [None]
